FAERS Safety Report 7897031-6 (Version None)
Quarter: 2011Q4

REPORT INFORMATION
  Report Type: 
  Country: None (occurrence: None)
  Receive Date: 20111107
  Receipt Date: 20111104
  Transmission Date: 20120403
  Serious: No
  Sender: FDA-Public Use
  Company Number: US-PFIZER INC-2011270860

PATIENT
  Sex: Female
  Weight: 90.703 kg

DRUGS (2)
  1. CELEBREX [Suspect]
     Indication: JOINT SWELLING
     Dosage: 100 MG, 2X/DAY
     Route: 048
     Dates: start: 20111102, end: 20111103
  2. ACIPHEX [Concomitant]
     Dosage: 20 MG, 1X/DAY

REACTIONS (3)
  - FLATULENCE [None]
  - DIARRHOEA [None]
  - ABDOMINAL PAIN UPPER [None]
